FAERS Safety Report 8951092 (Version 4)
Quarter: 2013Q1

REPORT INFORMATION
  Report Type: Spontaneous
  Country: JP (occurrence: JP)
  Receive Date: 20121207
  Receipt Date: 20130102
  Transmission Date: 20140127
  Serious: Yes (Death, Other)
  Sender: FDA-Public Use
  Company Number: PHHY2012JP112014

PATIENT
  Age: 61 Year
  Sex: Male

DRUGS (4)
  1. ZOMETA [Suspect]
     Indication: EXTRAMAMMARY PAGET^S DISEASE
     Dosage: 4 MG, MONTHLY
     Route: 041
     Dates: end: 20090622
  2. DOCETAXEL [Concomitant]
     Indication: PAGET^S DISEASE OF NIPPLE
     Dosage: 60 MG/M2, UNK
     Route: 042
  3. ANTINEOPLASTIC AGENTS [Concomitant]
     Dosage: UNK UKN, UNK
  4. ANALGESICS [Concomitant]
     Dosage: UNK UKN, UNK

REACTIONS (4)
  - Osteitis deformans [Fatal]
  - Malignant neoplasm progression [Fatal]
  - Carcinoembryonic antigen increased [Unknown]
  - Renal impairment [Not Recovered/Not Resolved]
